FAERS Safety Report 25106871 (Version 2)
Quarter: 2025Q1

REPORT INFORMATION
  Report Type: Spontaneous
  Country: US (occurrence: None)
  Receive Date: 20250321
  Receipt Date: 20250327
  Transmission Date: 20250409
  Serious: Yes (Death, Hospitalization, Other)
  Sender: INCYTE
  Company Number: US-INCYTE CORPORATION-2025IN002931

PATIENT
  Age: 84 Year
  Weight: 57.2 kg

DRUGS (1)
  1. JAKAFI [Suspect]
     Active Substance: RUXOLITINIB
     Indication: Polycythaemia vera
     Dosage: 5 MILLIGRAM, BID

REACTIONS (5)
  - Death [Fatal]
  - Cardiac failure congestive [Unknown]
  - Pulmonary fibrosis [Unknown]
  - Sarcoidosis [Unknown]
  - Product dose omission issue [Unknown]
